FAERS Safety Report 9494706 (Version 1)
Quarter: 2013Q3

REPORT INFORMATION
  Report Type: Report from Study
  Country: BR (occurrence: BR)
  Receive Date: 20130903
  Receipt Date: 20130903
  Transmission Date: 20140515
  Serious: Yes (Other)
  Sender: FDA-Public Use
  Company Number: BR-ABBOTT-13P-020-1140030-00

PATIENT
  Age: 65 Year
  Sex: Female
  Weight: 64 kg

DRUGS (5)
  1. HUMIRA [Suspect]
     Indication: RHEUMATOID ARTHRITIS
     Route: 058
     Dates: start: 201210, end: 201307
  2. HUMIRA [Suspect]
     Route: 058
     Dates: start: 20130820
  3. METHOTREXATE [Concomitant]
     Indication: RHEUMATOID ARTHRITIS
     Route: 048
     Dates: start: 2012
  4. LOSARTAN [Concomitant]
     Indication: HYPERTENSION
     Route: 048
     Dates: start: 2007
  5. ANTIBIOTICS [Concomitant]
     Indication: URINARY TRACT INFECTION

REACTIONS (2)
  - Endometriosis [Recovered/Resolved]
  - Urinary tract infection [Recovered/Resolved]
